FAERS Safety Report 7002171-X (Version None)
Quarter: 2010Q3

REPORT INFORMATION
  Report Type: 
  Country: None (occurrence: None)
  Receive Date: 20100920
  Receipt Date: 20100304
  Transmission Date: 20110219
  Serious: No
  Sender: FDA-Public Use
  Company Number: US-ASTRAZENECA-2010SE09398

PATIENT
  Age: 20 Year
  Sex: Female

DRUGS (2)
  1. SEROQUEL [Suspect]
     Indication: AUTISM SPECTRUM DISORDER
     Route: 048
     Dates: end: 20090701
  2. ABILIFY [Suspect]
     Indication: AUTISM SPECTRUM DISORDER
     Route: 065
     Dates: end: 20091101

REACTIONS (2)
  - DYSTONIA [None]
  - PAIN IN EXTREMITY [None]
